FAERS Safety Report 8462825 (Version 3)
Quarter: 2013Q4

REPORT INFORMATION
  Report Type: Spontaneous
  Country: FR (occurrence: None)
  Receive Date: 20120309
  Receipt Date: 20131101
  Transmission Date: 20140711
  Serious: Yes (Hospitalization)
  Sender: FDA-Public Use
  Company Number: 1215813

PATIENT
  Age: 69 Year
  Sex: Male

DRUGS (10)
  1. CARBOPLATIN [Suspect]
     Indication: LUNG NEOPLASM MALIGNANT
     Dosage: INTRAVENOUS (NOT OTHERWISE SPECIFIED)
     Route: 042
     Dates: start: 20111205
  2. PACLITAXEL [Suspect]
     Indication: LUNG NEOPLASM MALIGNANT
     Dosage: INTRAVENOUS (NOT OTHERWISE SPECIFIED)
     Route: 042
     Dates: start: 20111205
  3. (FORLAX /00754501/) [Concomitant]
  4. (LEXOMIL) [Concomitant]
  5. FOLIC ACID [Concomitant]
  6. CORDARONE [Concomitant]
  7. PARACETAMOL [Concomitant]
  8. NEXIUM [Concomitant]
  9. (TIORFAN) [Concomitant]
  10. ATORVASTATIN [Concomitant]

REACTIONS (1)
  - Pancytopenia [None]
